FAERS Safety Report 9998288 (Version 1)
Quarter: 2014Q1

REPORT INFORMATION
  Report Type: Report from Study
  Country: CA (occurrence: CA)
  Receive Date: 20140312
  Receipt Date: 20140312
  Transmission Date: 20141002
  Serious: Yes (Death, Hospitalization)
  Sender: FDA-Public Use
  Company Number: CA-JNJFOC-20140304147

PATIENT
  Sex: Male

DRUGS (5)
  1. TYLENOL REGULAR STRENGTH [Suspect]
     Route: 048
  2. TYLENOL REGULAR STRENGTH [Suspect]
     Indication: PRODUCT USED FOR UNKNOWN INDICATION
     Route: 048
     Dates: start: 19951217, end: 19980102
  3. TYLENOL COLD AND FLU [Suspect]
     Indication: PRODUCT USED FOR UNKNOWN INDICATION
     Route: 048
     Dates: start: 19951217, end: 19980102
  4. PENICILLIN [Concomitant]
     Indication: PRODUCT USED FOR UNKNOWN INDICATION
     Route: 048
  5. CODEINE [Concomitant]
     Indication: PRODUCT USED FOR UNKNOWN INDICATION
     Route: 048

REACTIONS (9)
  - Toxicity to various agents [Fatal]
  - Acute respiratory distress syndrome [Fatal]
  - Hepatic failure [Fatal]
  - Overdose [Fatal]
  - Renal failure [Fatal]
  - Sepsis [Fatal]
  - Peritonitis [Not Recovered/Not Resolved]
  - Hepatic encephalopathy [Not Recovered/Not Resolved]
  - Brain oedema [Not Recovered/Not Resolved]
